FAERS Safety Report 17992290 (Version 2)
Quarter: 2020Q3

REPORT INFORMATION
  Report Type: Spontaneous
  Country: PT (occurrence: PT)
  Receive Date: 20200707
  Receipt Date: 20200730
  Transmission Date: 20201103
  Serious: Yes (Hospitalization, Other)
  Sender: FDA-Public Use
  Company Number: PT-GILEAD-2020-0478236

PATIENT
  Age: 58 Year
  Sex: Male

DRUGS (2)
  1. COTRIMOXAZOLE [Suspect]
     Active Substance: SULFAMETHOXAZOLE\TRIMETHOPRIM
     Indication: PROPHYLAXIS
     Dosage: 960 MG, THREE TIMES A WEEK
     Route: 065
     Dates: start: 201912
  2. BIKTARVY [Suspect]
     Active Substance: BICTEGRAVIR SODIUM\EMTRICITABINE\TENOFOVIR ALAFENAMIDE FUMARATE
     Indication: HIV INFECTION
     Dosage: UNK
     Route: 065
     Dates: start: 201912

REACTIONS (16)
  - Communication disorder [Recovered/Resolved]
  - Loss of personal independence in daily activities [Recovered/Resolved]
  - Unevaluable event [Recovered/Resolved]
  - Drug ineffective [Recovered/Resolved]
  - Immune reconstitution inflammatory syndrome [Unknown]
  - Cerebral toxoplasmosis [Unknown]
  - Altered state of consciousness [Recovered/Resolved]
  - Neurological examination abnormal [Recovered/Resolved]
  - Mental disorder [Recovered/Resolved]
  - Apathy [Recovered/Resolved]
  - Abnormal behaviour [Recovered/Resolved]
  - Lack of spontaneous speech [Recovered/Resolved]
  - Gastrointestinal tube insertion [Recovered/Resolved]
  - Memory impairment [Recovered/Resolved]
  - Slow speech [Recovered/Resolved]
  - Seizure [Unknown]

NARRATIVE: CASE EVENT DATE: 202002
